FAERS Safety Report 6157040-4 (Version None)
Quarter: 2009Q2

REPORT INFORMATION
  Report Type: 
  Country: None (occurrence: None)
  Receive Date: 20090413
  Receipt Date: 20090402
  Transmission Date: 20091009
  Serious: Yes (Life-Threatening, Hospitalization)
  Sender: FDA-Public Use
  Company Number: GXKR2009GB04270

PATIENT
  Age: 49 Year
  Sex: Female

DRUGS (4)
  1. METFORMIN (NGX) (METFORMIN) UNKNOWN [Suspect]
     Dosage: ORAL
     Route: 048
  2. LOSARTAN POTASSIUM [Concomitant]
  3. BENDROFLUAZIDE (BENDROFLUMETHIAZIDE) [Concomitant]
  4. ATENOLOL [Concomitant]

REACTIONS (4)
  - DEHYDRATION [None]
  - HAEMODIALYSIS [None]
  - LACTIC ACIDOSIS [None]
  - RENAL FAILURE ACUTE [None]
